FAERS Safety Report 7063455-2 (Version None)
Quarter: 2010Q4

REPORT INFORMATION
  Report Type: 
  Country: None (occurrence: None)
  Receive Date: 20101026
  Receipt Date: 20101014
  Transmission Date: 20110411
  Serious: Yes (Other)
  Sender: FDA-Public Use
  Company Number: BR-GENENTECH-306221

PATIENT
  Sex: Male
  Weight: 96 kg

DRUGS (1)
  1. RITUXIMAB [Suspect]
     Indication: FIBROUS HISTIOCYTOMA
     Dosage: 1000 MG, UNK
     Route: 042
     Dates: start: 20100701, end: 20100715

REACTIONS (2)
  - DRUG INEFFECTIVE [None]
  - NEOPLASM PROGRESSION [None]
